FAERS Safety Report 5173147-2 (Version None)
Quarter: 2006Q4

REPORT INFORMATION
  Report Type: 
  Country: None (occurrence: None)
  Receive Date: 20061207
  Receipt Date: 20061207
  Transmission Date: 20070319
  Serious: Yes (Hospitalization)
  Sender: FDA-Public Use
  Company Number: None

PATIENT
  Age: 59 Year
  Sex: Female

DRUGS (12)
  1. ZONEGRAN [Suspect]
     Indication: ARTHRALGIA
     Dosage: POSSIBLY UP TO 400MG DAILY PO
     Route: 048
  2. DIOVAN HCT [Concomitant]
  3. CELEXA [Concomitant]
  4. EFFEXOR [Concomitant]
  5. ALBUTEROL [Concomitant]
  6. AEROBID [Concomitant]
  7. ATROVENT [Concomitant]
  8. DOCUSATE [Concomitant]
  9. CITRUCEL PLUS D [Concomitant]
  10. VESICARE [Concomitant]
  11. OXYCONTIN [Concomitant]
  12. OXYCODONE/ACETAMINOPHEN [Concomitant]

REACTIONS (6)
  - CONFUSIONAL STATE [None]
  - DISORIENTATION [None]
  - HYPOTENSION [None]
  - ILL-DEFINED DISORDER [None]
  - RENAL FAILURE [None]
  - URINE OUTPUT DECREASED [None]
